FAERS Safety Report 10052236 (Version 1)
Quarter: 2014Q2

REPORT INFORMATION
  Report Type: Spontaneous
  Country: FR (occurrence: FR)
  Receive Date: 20140402
  Receipt Date: 20140402
  Transmission Date: 20141212
  Serious: Yes (Hospitalization)
  Sender: FDA-Public Use
  Company Number: FR-009507513-1403FRA012169

PATIENT
  Age: 66 Year
  Sex: Male

DRUGS (7)
  1. REBETOL [Suspect]
     Indication: RESPIRATORY SYNCYTIAL VIRUS INFECTION
     Dosage: 400 MG, TID
     Route: 048
     Dates: start: 20140122, end: 20140128
  2. TAVANIC [Suspect]
     Indication: LUNG DISORDER
     Dosage: 500 MG, BID
     Route: 048
     Dates: start: 20140118, end: 20140127
  3. TARGOCID [Suspect]
     Indication: LUNG DISORDER
     Dosage: 400 MG, QD
     Route: 042
     Dates: start: 20140118, end: 20140128
  4. CORDARONE [Suspect]
     Indication: TACHYARRHYTHMIA
     Dosage: 200 MG, QD
     Route: 048
     Dates: start: 20131010, end: 20140122
  5. PREDNISONE [Concomitant]
  6. MYCOPHENOLATE MOFETIL [Concomitant]
  7. VFEND [Suspect]
     Indication: ANTIFUNGAL PROPHYLAXIS
     Dosage: 200 MG, BID
     Route: 048
     Dates: start: 20130911, end: 20140128

REACTIONS (2)
  - Hepatocellular injury [Recovered/Resolved]
  - Cholestasis [Recovered/Resolved]
